FAERS Safety Report 5763196-5 (Version None)
Quarter: 2008Q2

REPORT INFORMATION
  Report Type: 
  Country: None (occurrence: None)
  Receive Date: 20080609
  Receipt Date: 20080528
  Transmission Date: 20081010
  Serious: Yes (Other)
  Sender: FDA-Public Use
  Company Number: US-ELI_LILLY_AND_COMPANY-US200805006272

PATIENT
  Age: 60 Year
  Sex: Female

DRUGS (7)
  1. CYMBALTA [Suspect]
     Dosage: 60 MG, 2/D
     Dates: start: 20060101
  2. OXYCODONE HCL [Concomitant]
  3. AMITRIPTYLINE HCL [Concomitant]
  4. NEXIUM [Concomitant]
  5. KLONOPIN [Concomitant]
  6. LIPITOR [Concomitant]
  7. THYROID THERAPY [Concomitant]

REACTIONS (2)
  - AGEUSIA [None]
  - THYROID OPERATION [None]
